FAERS Safety Report 8428305-8 (Version None)
Quarter: 2012Q2

REPORT INFORMATION
  Report Type: 
  Country: None (occurrence: None)
  Receive Date: 20120611
  Receipt Date: 20120531
  Transmission Date: 20120825
  Serious: Yes (Other)
  Sender: FDA-Public Use
  Company Number: TR-ABBOTT-12P-161-0941931-00

PATIENT
  Age: 1 Day
  Sex: Male

DRUGS (1)
  1. FENOFIBRATE [Suspect]
     Indication: MATERNAL EXPOSURE TIMING UNSPECIFIED

REACTIONS (6)
  - MATERNAL DRUGS AFFECTING FOETUS [None]
  - FOETAL EXPOSURE DURING PREGNANCY [None]
  - FOETAL DISTRESS SYNDROME [None]
  - CAESAREAN SECTION [None]
  - NORMAL NEWBORN [None]
  - PREMATURE BABY [None]
